FAERS Safety Report 6854934-9 (Version None)
Quarter: 2010Q3

REPORT INFORMATION
  Report Type: 
  Country: None (occurrence: None)
  Receive Date: 20100717
  Receipt Date: 20080318
  Transmission Date: 20110219
  Serious: No
  Sender: FDA-Public Use
  Company Number: US-PFIZER INC-2007099529

PATIENT
  Sex: Female
  Weight: 59.1 kg

DRUGS (4)
  1. CHANTIX [Suspect]
     Indication: SMOKING CESSATION THERAPY
     Route: 048
     Dates: start: 20071113, end: 20071117
  2. PHENOBARBITAL [Concomitant]
  3. ESTROVEN [Concomitant]
     Dates: start: 20070101
  4. TETRACYCLINE [Concomitant]

REACTIONS (2)
  - DIZZINESS [None]
  - INFLUENZA LIKE ILLNESS [None]
